FAERS Safety Report 9638455 (Version 2)
Quarter: 2013Q4

REPORT INFORMATION
  Report Type: Report from Study
  Country: DE (occurrence: CA)
  Receive Date: 20131022
  Receipt Date: 20131028
  Transmission Date: 20140711
  Serious: Yes (Death)
  Sender: FDA-Public Use
  Company Number: CA-PFIZER INC-2013296241

PATIENT
  Age: 34 Year
  Sex: Male

DRUGS (5)
  1. ALPRAZOLAM [Suspect]
     Dosage: UNK
  2. OXYCODONE [Suspect]
     Dosage: UNK
  3. OLANZAPINE [Suspect]
     Dosage: UNK
  4. CITALOPRAM [Suspect]
     Dosage: UNK
  5. CODEINE [Suspect]
     Dosage: UNK

REACTIONS (1)
  - Arrhythmia [Fatal]
